FAERS Safety Report 6594167-7 (Version None)
Quarter: 2010Q1

REPORT INFORMATION
  Report Type: 
  Country: None (occurrence: None)
  Receive Date: 20100222
  Receipt Date: 20100212
  Transmission Date: 20100710
  Serious: Yes (Other)
  Sender: FDA-Public Use
  Company Number: US-JNJCH-2010004565

PATIENT
  Age: 40 Year
  Sex: Male
  Weight: 83.9 kg

DRUGS (1)
  1. COOL MINT LISTERINE [Suspect]
     Indication: DRUG USE FOR UNKNOWN INDICATION
     Dosage: TEXT:ONCE
     Route: 048

REACTIONS (2)
  - APPLICATION SITE BURN [None]
  - TONGUE DISORDER [None]
